FAERS Safety Report 4916683-3 (Version None)
Quarter: 2006Q1

REPORT INFORMATION
  Report Type: 
  Country: None (occurrence: None)
  Receive Date: 20060220
  Receipt Date: 20051122
  Transmission Date: 20060701
  Serious: Yes (Hospitalization)
  Sender: FDA-Public Use
  Company Number: 2005AP06110

PATIENT
  Age: 27487 Day
  Sex: Male

DRUGS (13)
  1. IRESSA [Suspect]
     Indication: NON-SMALL CELL LUNG CANCER
     Route: 048
     Dates: start: 20051108, end: 20051122
  2. IRESSA [Suspect]
     Indication: LUNG NEOPLASM MALIGNANT
     Route: 048
     Dates: start: 20051108, end: 20051122
  3. OXYCONTIN [Suspect]
     Indication: CANCER PAIN
     Route: 048
     Dates: start: 20051109, end: 20051119
  4. OXYCONTIN [Suspect]
     Route: 048
     Dates: start: 20051120, end: 20051124
  5. MAGMITT [Concomitant]
     Indication: CONSTIPATION
     Route: 048
     Dates: start: 20051114
  6. PURSENNID [Concomitant]
     Indication: CONSTIPATION
     Route: 048
     Dates: start: 20051114
  7. SIGMART [Concomitant]
     Indication: ANGINA PECTORIS
     Route: 048
  8. SELOKEN L [Concomitant]
     Indication: HYPERTENSION
     Route: 048
  9. ACECOL [Concomitant]
     Indication: HYPERTENSION
     Route: 048
  10. ADALAT [Concomitant]
     Indication: HYPERTENSION
     Route: 048
  11. GASTER D [Concomitant]
     Indication: GASTRITIS
     Route: 048
  12. SERMION [Concomitant]
     Indication: CEREBRAL CIRCULATORY FAILURE
     Route: 048
  13. NITRODERM [Concomitant]
     Indication: ANGINA PECTORIS
     Route: 048

REACTIONS (7)
  - ANOREXIA [None]
  - CONSTIPATION [None]
  - DRUG INEFFECTIVE [None]
  - HYPOAESTHESIA [None]
  - PYREXIA [None]
  - RASH [None]
  - URINARY RETENTION [None]
